FAERS Safety Report 4375825-1 (Version None)
Quarter: 2004Q2

REPORT INFORMATION
  Report Type: 
  Country: None (occurrence: None)
  Receive Date: 20040609
  Receipt Date: 20040609
  Transmission Date: 20050107
  Serious: Yes (Hospitalization, Other)
  Sender: FDA-Public Use
  Company Number: None

PATIENT
  Age: 70 Year
  Sex: Male

DRUGS (3)
  1. SPIRONOLACTONE [Suspect]
     Indication: HYPERTENSION
  2. FOSINOPRIL SODIUM [Suspect]
  3. KCL SUPPLEMENT [Suspect]

REACTIONS (1)
  - HYPERKALAEMIA [None]
